FAERS Safety Report 7225364-5 (Version None)
Quarter: 2011Q1

REPORT INFORMATION
  Report Type: 
  Country: None (occurrence: None)
  Receive Date: 20110113
  Receipt Date: 20110106
  Transmission Date: 20110831
  Serious: Yes (Death, Hospitalization)
  Sender: FDA-Public Use
  Company Number: MX-WATSON-2011-00239

PATIENT
  Age: 76 Year
  Sex: Male

DRUGS (3)
  1. ETOPOSIDE (WATSON LABORATORIES) [Suspect]
     Indication: NON-HODGKIN'S LYMPHOMA
     Dosage: UNK
  2. MAPTERA/REFLIXIMAB [Suspect]
     Indication: NON-HODGKIN'S LYMPHOMA
     Dosage: UNK
  3. CYCLOPHOSPHAMIDE [Suspect]
     Indication: NON-HODGKIN'S LYMPHOMA
     Dosage: UNK

REACTIONS (5)
  - ANTITHROMBIN III DECREASED [None]
  - PURPURA FULMINANS [None]
  - RESPIRATORY FAILURE [None]
  - ESCHERICHIA SEPSIS [None]
  - METABOLIC ACIDOSIS [None]
